FAERS Safety Report 7704684-1 (Version None)
Quarter: 2011Q3

REPORT INFORMATION
  Report Type: 
  Country: None (occurrence: None)
  Receive Date: 20110823
  Receipt Date: 20110815
  Transmission Date: 20111222
  Serious: Yes (Other)
  Sender: FDA-Public Use
  Company Number: BR-SANOFI-AVENTIS-2010SA004961

PATIENT
  Sex: Female
  Weight: 52 kg

DRUGS (13)
  1. LANTUS [Suspect]
     Indication: TYPE 2 DIABETES MELLITUS
     Dosage: 38 IU IN THE MORNING AND 20 IU AT NIGHT
     Route: 058
  2. AUTOPEN 24 [Suspect]
     Route: 058
  3. NOVORAPID [Concomitant]
     Indication: TYPE 2 DIABETES MELLITUS
     Route: 058
     Dates: start: 20110101
  4. SIMVASTATIN [Concomitant]
     Route: 048
     Dates: start: 20060101
  5. OPTIPEN [Suspect]
     Indication: TYPE 2 DIABETES MELLITUS
  6. OLCADIL [Concomitant]
     Route: 048
  7. LASILACTONA [Concomitant]
     Route: 048
  8. APIDRA [Suspect]
     Dosage: ACCORDING TO GLYCEMIA
     Route: 058
  9. CRESTOR [Concomitant]
     Route: 048
  10. ACETYLSALICYLIC ACID SRT [Concomitant]
     Route: 048
  11. LANTUS [Suspect]
  12. ENALAPRIL MALEATE [Concomitant]
     Indication: BLOOD PRESSURE
     Route: 048
  13. ANASTROZOLE [Concomitant]
     Route: 048

REACTIONS (6)
  - HYPERGLYCAEMIA [None]
  - FEELING ABNORMAL [None]
  - INJECTION SITE PAIN [None]
  - CHOLELITHIASIS [None]
  - DIZZINESS [None]
  - BREAST CANCER [None]
